FAERS Safety Report 16747245 (Version 1)
Quarter: 2019Q3

REPORT INFORMATION
  Report Type: Report from Study
  Country: CA (occurrence: CA)
  Receive Date: 20190827
  Receipt Date: 20190827
  Transmission Date: 20191005
  Serious: Yes (Hospitalization)
  Sender: FDA-Public Use
  Company Number: CA-NALPROPION PHARMACEUTICALS INC.-2019-007800

PATIENT

DRUGS (11)
  1. CONTRAVE [Suspect]
     Active Substance: BUPROPION HYDROCHLORIDE\NALTREXONE HYDROCHLORIDE
     Dosage: 2 TABS QAM, 2 TABS QPM ( 2 DOSAGE FORMS, 2 IN 1 D)
     Route: 048
     Dates: start: 20190523, end: 201905
  2. CONTRAVE [Suspect]
     Active Substance: BUPROPION HYDROCHLORIDE\NALTREXONE HYDROCHLORIDE
     Dosage: THIRD ATTEMPT: 1 TAB QAM (1 DOSAGE FORMS,1 IN 1 D)
     Route: 048
     Dates: start: 20190713, end: 20190719
  3. CONTRAVE [Suspect]
     Active Substance: BUPROPION HYDROCHLORIDE\NALTREXONE HYDROCHLORIDE
     Dosage: 2 TABS QAM, 2 TABS QPM (2 DOSAGE FORMS,2 IN 1 D)
     Route: 048
     Dates: start: 20190803
  4. CONTRAVE [Suspect]
     Active Substance: BUPROPION HYDROCHLORIDE\NALTREXONE HYDROCHLORIDE
     Dosage: 1 TAB QAM, 1 TAB QPM (1 DOSAGE FORMS,2 IN 1 D)
     Route: 048
     Dates: start: 20190509, end: 20190515
  5. CONTRAVE [Suspect]
     Active Substance: BUPROPION HYDROCHLORIDE\NALTREXONE HYDROCHLORIDE
     Dosage: 2 TABS QAM, 1 TAB QPM ( 2 IN 1 D)
     Route: 048
     Dates: start: 20190516, end: 20190522
  6. CONTRAVE [Suspect]
     Active Substance: BUPROPION HYDROCHLORIDE\NALTREXONE HYDROCHLORIDE
     Dosage: SECOND ATTEMPT
     Route: 048
     Dates: start: 2019, end: 2019
  7. CONTRAVE [Suspect]
     Active Substance: BUPROPION HYDROCHLORIDE\NALTREXONE HYDROCHLORIDE
     Indication: WEIGHT CONTROL
     Dosage: 1 TAB QAM (1 DOSAGE FORMS,1 IN 1 D)
     Route: 048
     Dates: start: 201905, end: 20190508
  8. CONTRAVE [Suspect]
     Active Substance: BUPROPION HYDROCHLORIDE\NALTREXONE HYDROCHLORIDE
     Dosage: SECOND ATTEMPT: WEEK FOUR
     Route: 048
     Dates: start: 2019, end: 201907
  9. CIPRALEX [Concomitant]
     Active Substance: ESCITALOPRAM OXALATE
     Indication: MOOD SWINGS
     Dosage: 10 MG, QD
     Route: 048
     Dates: start: 20190808
  10. CONTRAVE [Suspect]
     Active Substance: BUPROPION HYDROCHLORIDE\NALTREXONE HYDROCHLORIDE
     Dosage: 1 TABS QAM, 1 TAB QPM (1 DOSAGE FORMS,2 IN 1 D)
     Route: 048
     Dates: start: 20190720, end: 20190726
  11. CONTRAVE [Suspect]
     Active Substance: BUPROPION HYDROCHLORIDE\NALTREXONE HYDROCHLORIDE
     Dosage: 2 TABS QAM, 1 TABS QPM (2 IN 1 D)
     Route: 048
     Dates: start: 20190727, end: 20190802

REACTIONS (5)
  - Gallbladder disorder [Unknown]
  - Intentional dose omission [Unknown]
  - Insomnia [Unknown]
  - Nausea [Recovered/Resolved]
  - Therapeutic product effect incomplete [Unknown]

NARRATIVE: CASE EVENT DATE: 201905
